FAERS Safety Report 7418133-4 (Version None)
Quarter: 2011Q2

REPORT INFORMATION
  Report Type: 
  Country: None (occurrence: None)
  Receive Date: 20110415
  Receipt Date: 20110411
  Transmission Date: 20111010
  Serious: Yes (Other)
  Sender: FDA-Public Use
  Company Number: BR-PFIZER INC-2011055368

PATIENT
  Age: 63 Year
  Sex: Female
  Weight: 65 kg

DRUGS (7)
  1. CONDROFLEX [Concomitant]
     Indication: ARTHRALGIA
     Dosage: UNK
  2. LIPITOR [Suspect]
     Indication: BLOOD CHOLESTEROL INCREASED
     Dosage: 10 MG, 1X/DAY
     Route: 048
     Dates: start: 20110309
  3. CLORANA [Concomitant]
     Indication: ARRHYTHMIA SUPRAVENTRICULAR
  4. MULTIVITAMIN [Concomitant]
     Dosage: UNK
  5. CLORANA [Concomitant]
     Indication: CARDIAC DISORDER
     Dosage: 0.25 MG, HALF TABLET
  6. ASCORBIC ACID [Concomitant]
     Dosage: UNK
  7. TIBOLONE [Concomitant]
     Dosage: UNK
     Dates: start: 20100101

REACTIONS (1)
  - TACHYCARDIA [None]
